FAERS Safety Report 5366487-5 (Version None)
Quarter: 2007Q2

REPORT INFORMATION
  Report Type: 
  Country: None (occurrence: None)
  Receive Date: 20070622
  Receipt Date: 20070618
  Transmission Date: 20071010
  Serious: Yes (Hospitalization)
  Sender: FDA-Public Use
  Company Number: PHEH2007US06251

PATIENT
  Age: 30 Year
  Sex: Female

DRUGS (3)
  1. ZELNORM [Suspect]
     Indication: IRRITABLE BOWEL SYNDROME
     Dosage: 6 MG, BID
     Route: 048
     Dates: start: 20060531, end: 20070330
  2. TOPROL-XL [Concomitant]
     Dosage: 25 MG, UNK
  3. MAXALT /USA/ [Concomitant]
     Dosage: 10 MG, PRN

REACTIONS (3)
  - DIZZINESS [None]
  - HEADACHE [None]
  - SYNCOPE [None]
